FAERS Safety Report 13320803 (Version 1)
Quarter: 2017Q1

REPORT INFORMATION
  Report Type: Spontaneous
  Country: US (occurrence: US)
  Receive Date: 20170309
  Receipt Date: 20170309
  Transmission Date: 20170428
  Serious: No
  Sender: FDA-Public Use
  Company Number: US-B.I. PHARMACEUTICALS,INC./RIDGEFIELD-2017-BI-010900

PATIENT
  Age: 57 Year
  Sex: Female

DRUGS (1)
  1. GILOTRIF [Suspect]
     Active Substance: AFATINIB
     Indication: OVARIAN CANCER
     Route: 065
     Dates: start: 201608

REACTIONS (2)
  - Off label use [Unknown]
  - Neoplasm [Unknown]

NARRATIVE: CASE EVENT DATE: 201608
